FAERS Safety Report 7979716-6 (Version None)
Quarter: 2011Q4

REPORT INFORMATION
  Report Type: 
  Country: None (occurrence: None)
  Receive Date: 20111214
  Receipt Date: 20111208
  Transmission Date: 20120403
  Serious: Yes (Other)
  Sender: FDA-Public Use
  Company Number: GB-B.I. PHARMACEUTICALS,INC./RIDGEFIELD-2011-UK-01344UK

PATIENT
  Age: 83 Year
  Sex: Female

DRUGS (4)
  1. FOSAMAX [Concomitant]
     Dosage: 70 MG
     Route: 048
     Dates: start: 20081108
  2. VITAMIN B-12 [Concomitant]
  3. INFLUENZA VIRUS [Concomitant]
     Dates: start: 20111010, end: 20111010
  4. SPIRIVA [Suspect]
     Indication: CHRONIC OBSTRUCTIVE PULMONARY DISEASE
     Dosage: 18 MCG
     Route: 055
     Dates: start: 20111019, end: 20111026

REACTIONS (4)
  - EYELIDS PRURITUS [None]
  - SNEEZING [None]
  - EPISTAXIS [None]
  - STOMATITIS [None]
